FAERS Safety Report 7650698-X (Version None)
Quarter: 2011Q3

REPORT INFORMATION
  Report Type: 
  Country: None (occurrence: None)
  Receive Date: 20110802
  Receipt Date: 20110722
  Transmission Date: 20111222
  Serious: Yes (Life-Threatening, Hospitalization)
  Sender: FDA-Public Use
  Company Number: DE-JNJFOC-20110710752

PATIENT
  Age: 50 Year
  Sex: Male

DRUGS (2)
  1. REMICADE [Suspect]
     Indication: CROHN'S DISEASE
     Dosage: SECOND DOSE
     Route: 042
     Dates: start: 20110705
  2. REMICADE [Suspect]
     Route: 042

REACTIONS (3)
  - SEPTIC SHOCK [None]
  - PNEUMONIA [None]
  - LEGIONELLA INFECTION [None]
